FAERS Safety Report 5592204-X (Version None)
Quarter: 2007Q4

REPORT INFORMATION
  Report Type: 
  Country: None (occurrence: None)
  Receive Date: 20071217
  Receipt Date: 20071109
  Transmission Date: 20080405
  Serious: No
  Sender: FDA-Public Use
  Company Number: BDI-010667

PATIENT
  Age: 37 Year
  Sex: Male
  Weight: 89 kg

DRUGS (3)
  1. MULTIHANCE [Suspect]
     Indication: NEURALGIA
     Dosage: 17 ML ONCE IV
     Route: 042
     Dates: start: 20071109, end: 20071109
  2. MULTIHANCE [Suspect]
     Indication: NUCLEAR MAGNETIC RESONANCE IMAGING
     Dosage: 17 ML ONCE IV
     Route: 042
     Dates: start: 20071109, end: 20071109
  3. MULTIHANCE [Suspect]
     Indication: NUCLEAR MAGNETIC RESONANCE IMAGING BRAIN
     Dosage: 17 ML ONCE IV
     Route: 042
     Dates: start: 20071109, end: 20071109

REACTIONS (2)
  - DIZZINESS [None]
  - NAUSEA [None]
